FAERS Safety Report 10079087 (Version 1)
Quarter: 2014Q2

REPORT INFORMATION
  Report Type: Spontaneous
  Country: US (occurrence: US)
  Receive Date: 20140415
  Receipt Date: 20140415
  Transmission Date: 20141212
  Serious: Yes (Other)
  Sender: FDA-Public Use
  Company Number: US-INCYTE CORPORATION-2014IN000971

PATIENT
  Sex: Male
  Weight: 84.81 kg

DRUGS (1)
  1. JAKAFI [Suspect]
     Dosage: 2 TABLETS IN AM AND 1 TABLET IN PM
     Route: 048
     Dates: start: 20120120

REACTIONS (1)
  - Loss of consciousness [Unknown]
